FAERS Safety Report 7878739-5 (Version None)
Quarter: 2011Q4

REPORT INFORMATION
  Report Type: 
  Country: None (occurrence: None)
  Receive Date: 20111028
  Receipt Date: 20111024
  Transmission Date: 20120403
  Serious: Yes (Death, Hospitalization)
  Sender: FDA-Public Use
  Company Number: 2011PL000148

PATIENT
  Age: 47 Year
  Sex: Female

DRUGS (6)
  1. VILDAGLIPTIN [Concomitant]
  2. AZATHIOPRINE [Suspect]
     Indication: POLYMYOSITIS
  3. FENOFIBRATE [Concomitant]
  4. PIOGLITAZONE [Concomitant]
  5. LISINOPRIL [Concomitant]
  6. METFORMIN HCL [Concomitant]

REACTIONS (8)
  - GLOSSITIS [None]
  - CHEILITIS [None]
  - ALDOLASE INCREASED [None]
  - NICOTINIC ACID DEFICIENCY [None]
  - BONE MARROW FAILURE [None]
  - NICOTINAMIDE DECREASED [None]
  - ANTINUCLEAR ANTIBODY POSITIVE [None]
  - BLOOD CREATINE PHOSPHOKINASE INCREASED [None]
